FAERS Safety Report 10253338 (Version 1)
Quarter: 2014Q2

REPORT INFORMATION
  Report Type: Report from Study
  Country: US (occurrence: US)
  Receive Date: 20140623
  Receipt Date: 20140623
  Transmission Date: 20141212
  Serious: Yes (Other)
  Sender: FDA-Public Use
  Company Number: US-BAYER-2014-090692

PATIENT
  Sex: 0

DRUGS (1)
  1. SORAFENIB (RAF KINASE INHIBITOR) [Suspect]
     Indication: MYCOSIS FUNGOIDES STAGE IV
     Dosage: 1 CYCLE

REACTIONS (2)
  - Sepsis [None]
  - Mycosis fungoides [None]
